FAERS Safety Report 8380934-6 (Version None)
Quarter: 2012Q2

REPORT INFORMATION
  Report Type: 
  Country: None (occurrence: None)
  Receive Date: 20120523
  Receipt Date: 20120518
  Transmission Date: 20120825
  Serious: Yes (Other)
  Sender: FDA-Public Use
  Company Number: PHHY2011MX86916

PATIENT
  Sex: Female

DRUGS (4)
  1. TREMECOX [Concomitant]
     Indication: PAIN
     Dosage: 1 DF, UNK
     Dates: start: 20090101
  2. CARDALINE [Concomitant]
     Indication: CARDIOVASCULAR INSUFFICIENCY
     Dosage: 1 DF, UNK
     Dates: start: 20090101
  3. DIOVAN HCT [Suspect]
     Indication: HYPERTENSION
     Dosage: 1 DF PER DAY(160 MG OF VALSARTAN/ 25 MG OF HYDROCHLOROTHIAZIDE)
     Dates: start: 20081101
  4. ASPIRIN [Concomitant]
     Indication: THROMBOSIS
     Dosage: 1 DF, QD
     Dates: start: 20080101

REACTIONS (9)
  - LISTLESS [None]
  - LIMB INJURY [None]
  - MEMORY IMPAIRMENT [None]
  - TREMOR [None]
  - FEELING HOT [None]
  - NERVOUSNESS [None]
  - FALL [None]
  - DECREASED APPETITE [None]
  - ASTHENIA [None]
